FAERS Safety Report 7582425-9 (Version None)
Quarter: 2011Q2

REPORT INFORMATION
  Report Type: 
  Country: None (occurrence: None)
  Receive Date: 20110630
  Receipt Date: 20110620
  Transmission Date: 20111010
  Serious: Yes (Hospitalization, Other)
  Sender: FDA-Public Use
  Company Number: CA-ELI_LILLY_AND_COMPANY-CA201106006045

PATIENT
  Age: 48 Year
  Sex: Female

DRUGS (9)
  1. CYMBALTA [Suspect]
     Dosage: 30 MG, QD
     Dates: start: 20090101, end: 20090101
  2. WELLBUTRIN [Concomitant]
  3. CYMBALTA [Suspect]
     Dosage: 30 MG, QD
     Dates: start: 20110525, end: 20110101
  4. CYMBALTA [Suspect]
     Indication: DEPRESSION
     Dosage: 60 MG, QD
     Dates: start: 20080101, end: 20090101
  5. CYMBALTA [Suspect]
     Dosage: 15 MG, UNKNOWN
     Dates: start: 20090101, end: 20090101
  6. CYMBALTA [Suspect]
     Dosage: 30 MG, OTHER
     Dates: start: 20110101
  7. FERROUS SULFATE TAB [Concomitant]
  8. CYMBALTA [Suspect]
     Dosage: 60 MG, QD
     Dates: start: 20090101, end: 20110525
  9. AMOXICILLINE                       /00249602/ [Concomitant]

REACTIONS (9)
  - PARAESTHESIA [None]
  - FEELING ABNORMAL [None]
  - CONVULSION [None]
  - DENTAL OPERATION [None]
  - NAUSEA [None]
  - BLOOD IRON DECREASED [None]
  - LOSS OF CONSCIOUSNESS [None]
  - DRUG WITHDRAWAL SYNDROME [None]
  - WRONG TECHNIQUE IN DRUG USAGE PROCESS [None]
